FAERS Safety Report 6875766-1 (Version None)
Quarter: 2010Q3

REPORT INFORMATION
  Report Type: 
  Country: None (occurrence: None)
  Receive Date: 20100727
  Receipt Date: 20071004
  Transmission Date: 20110219
  Serious: Yes (Hospitalization, Other)
  Sender: FDA-Public Use
  Company Number: US-PFIZER INC-2006150001

PATIENT
  Sex: Female
  Weight: 81.6 kg

DRUGS (12)
  1. CELEBREX [Suspect]
     Indication: PAIN
     Dates: start: 20000101, end: 20010101
  2. VIOXX [Suspect]
     Indication: PAIN
     Dates: start: 20000207
  3. DESIPRAMINE HCL [Concomitant]
     Dates: start: 19970201, end: 19980701
  4. DAYPRO [Concomitant]
     Dates: start: 19990101, end: 19990201
  5. CYCLOBENZAPRINE [Concomitant]
     Dates: start: 19990501, end: 19991201
  6. PROPACET 100 [Concomitant]
     Indication: PAIN
     Dates: start: 19990501, end: 20040201
  7. OXYCET [Concomitant]
     Indication: PAIN
     Dates: start: 19991101, end: 20000101
  8. IBUPROFEN TABLETS [Concomitant]
     Dates: start: 19991101, end: 20000201
  9. ULTRAM [Concomitant]
     Indication: PAIN
     Dates: start: 20001201, end: 20011201
  10. ZOCOR [Concomitant]
     Indication: BLOOD CHOLESTEROL INCREASED
     Dates: start: 19990901, end: 20010501
  11. MERIDIA [Concomitant]
     Indication: OBESITY
     Dates: start: 20001101, end: 20010201
  12. XENICAL [Concomitant]
     Indication: OBESITY
     Dates: start: 20000701, end: 20040201

REACTIONS (1)
  - MYOCARDIAL INFARCTION [None]
